FAERS Safety Report 8111259-1 (Version None)
Quarter: 2012Q1

REPORT INFORMATION
  Report Type: 
  Country: None (occurrence: None)
  Receive Date: 20120203
  Receipt Date: 20110719
  Transmission Date: 20120608
  Serious: Yes (Disabling, Other)
  Sender: FDA-Public Use
  Company Number: US-GLAXOSMITHKLINE-A0937340A

PATIENT
  Age: 22 Year
  Sex: Male

DRUGS (5)
  1. IBUPROFEN [Concomitant]
  2. LAMICTAL [Suspect]
     Indication: EPILEPSY
     Route: 048
     Dates: start: 20110612, end: 20110628
  3. DEPAKOTE [Concomitant]
  4. AMOXICILLIN [Concomitant]
  5. ACETAMINOPHEN [Concomitant]

REACTIONS (7)
  - OROPHARYNGEAL PAIN [None]
  - GINGIVITIS [None]
  - ORAL PUSTULE [None]
  - CONVULSION [None]
  - RASH [None]
  - PYREXIA [None]
  - OROPHARYNGEAL BLISTERING [None]
